FAERS Safety Report 19707789 (Version 8)
Quarter: 2022Q2

REPORT INFORMATION
  Report Type: Spontaneous
  Country: NO (occurrence: NO)
  Receive Date: 20210817
  Receipt Date: 20220415
  Transmission Date: 20220721
  Serious: No
  Sender: FDA-Public Use
  Company Number: NO-JNJFOC-20210764841

PATIENT
  Age: 36 Year
  Sex: Female

DRUGS (51)
  1. FENTANYL [Suspect]
     Active Substance: FENTANYL
     Indication: Pain
     Dosage: STRENGTH: 25.00 MCG/HR
     Route: 062
  2. FENTANYL [Suspect]
     Active Substance: FENTANYL
  3. FENTANYL [Suspect]
     Active Substance: FENTANYL
  4. FENTANYL [Suspect]
     Active Substance: FENTANYL
  5. FENTANYL [Suspect]
     Active Substance: FENTANYL
  6. FENTANYL [Suspect]
     Active Substance: FENTANYL
  7. FENTANYL [Suspect]
     Active Substance: FENTANYL
  8. FENTANYL [Suspect]
     Active Substance: FENTANYL
  9. FENTANYL [Suspect]
     Active Substance: FENTANYL
  10. FENTANYL [Suspect]
     Active Substance: FENTANYL
  11. FENTANYL [Suspect]
     Active Substance: FENTANYL
  12. FENTANYL [Suspect]
     Active Substance: FENTANYL
  13. FENTANYL [Suspect]
     Active Substance: FENTANYL
     Indication: Pain
     Dosage: STRENGTH: 12.00 MCG/HR
     Route: 062
  14. FENTANYL [Suspect]
     Active Substance: FENTANYL
     Route: 062
  15. FENTANYL [Suspect]
     Active Substance: FENTANYL
  16. FENTANYL [Suspect]
     Active Substance: FENTANYL
  17. FENTANYL [Suspect]
     Active Substance: FENTANYL
  18. FENTANYL [Suspect]
     Active Substance: FENTANYL
  19. FENTANYL [Suspect]
     Active Substance: FENTANYL
  20. FENTANYL [Suspect]
     Active Substance: FENTANYL
  21. FENTANYL [Suspect]
     Active Substance: FENTANYL
  22. FENTANYL [Suspect]
     Active Substance: FENTANYL
  23. FENTANYL [Suspect]
     Active Substance: FENTANYL
  24. FENTANYL [Suspect]
     Active Substance: FENTANYL
  25. FENTANYL [Suspect]
     Active Substance: FENTANYL
     Indication: Pain
     Dosage: STRENGTH: 25.00 MCG/HR
     Route: 062
  26. FENTANYL [Suspect]
     Active Substance: FENTANYL
  27. FENTANYL [Suspect]
     Active Substance: FENTANYL
  28. FENTANYL [Suspect]
     Active Substance: FENTANYL
  29. FENTANYL [Suspect]
     Active Substance: FENTANYL
  30. FENTANYL [Suspect]
     Active Substance: FENTANYL
  31. FENTANYL [Suspect]
     Active Substance: FENTANYL
  32. FENTANYL [Suspect]
     Active Substance: FENTANYL
  33. FENTANYL [Suspect]
     Active Substance: FENTANYL
  34. FENTANYL [Suspect]
     Active Substance: FENTANYL
  35. FENTANYL [Suspect]
     Active Substance: FENTANYL
  36. FENTANYL [Suspect]
     Active Substance: FENTANYL
  37. FENTANYL [Suspect]
     Active Substance: FENTANYL
     Indication: Pain
     Dosage: STRENGTH: 12.00 MCG/HR
     Route: 062
  38. FENTANYL [Suspect]
     Active Substance: FENTANYL
  39. FENTANYL [Suspect]
     Active Substance: FENTANYL
  40. FENTANYL [Suspect]
     Active Substance: FENTANYL
  41. FENTANYL [Suspect]
     Active Substance: FENTANYL
  42. FENTANYL [Suspect]
     Active Substance: FENTANYL
  43. FENTANYL [Suspect]
     Active Substance: FENTANYL
  44. FENTANYL [Suspect]
     Active Substance: FENTANYL
  45. FENTANYL [Suspect]
     Active Substance: FENTANYL
  46. FENTANYL [Suspect]
     Active Substance: FENTANYL
  47. FENTANYL [Suspect]
     Active Substance: FENTANYL
  48. FENTANYL [Suspect]
     Active Substance: FENTANYL
  49. ACETAMINOPHEN [Concomitant]
     Active Substance: ACETAMINOPHEN
  50. CITALOPRAM [Concomitant]
     Active Substance: CITALOPRAM HYDROBROMIDE
  51. ERGOCALCIFEROL [Concomitant]
     Active Substance: ERGOCALCIFEROL

REACTIONS (5)
  - Application site hypersensitivity [Unknown]
  - Application site pruritus [Unknown]
  - Wrong technique in product usage process [Unknown]
  - Product adhesion issue [Unknown]
  - Application site laceration [Unknown]
